FAERS Safety Report 14430282 (Version 1)
Quarter: 2018Q1

REPORT INFORMATION
  Report Type: Spontaneous
  Country: US (occurrence: US)
  Receive Date: 20180123
  Receipt Date: 20180123
  Transmission Date: 20180509
  Serious: No
  Sender: FDA-Public Use
  Company Number: None

PATIENT
  Age: 64 Year
  Sex: Female

DRUGS (1)
  1. STELARA [Suspect]
     Active Substance: USTEKINUMAB

REACTIONS (6)
  - Weight increased [None]
  - Back pain [None]
  - Feeling abnormal [None]
  - Dehydration [None]
  - Nasopharyngitis [None]
  - Muscle spasms [None]

NARRATIVE: CASE EVENT DATE: 20180123
